FAERS Safety Report 6747130-7 (Version None)
Quarter: 2010Q2

REPORT INFORMATION
  Report Type: 
  Country: None (occurrence: None)
  Receive Date: 20100528
  Receipt Date: 20100521
  Transmission Date: 20101027
  Serious: Yes (Other)
  Sender: FDA-Public Use
  Company Number: MY-PFIZER INC-2010066467

PATIENT
  Age: 75 Year
  Sex: Male

DRUGS (2)
  1. CELEBREX [Suspect]
     Indication: ARTHRALGIA
     Dosage: 200 MG, 1X/DAY
     Route: 048
     Dates: start: 20090420
  2. MYONAL [Suspect]
     Indication: MUSCLE SPASMS
     Dosage: 150 MG, 1X/DAY
     Route: 048
     Dates: start: 20090420

REACTIONS (3)
  - BURNING SENSATION [None]
  - PARAESTHESIA [None]
  - URTICARIA [None]
